FAERS Safety Report 5779678-6 (Version None)
Quarter: 2008Q2

REPORT INFORMATION
  Report Type: 
  Country: None (occurrence: None)
  Receive Date: 20080619
  Receipt Date: 20080616
  Transmission Date: 20081010
  Serious: Yes (Disabling)
  Sender: FDA-Public Use
  Company Number: US-MERCK-0805USA02931

PATIENT
  Age: 9 Year
  Sex: Female
  Weight: 35 kg

DRUGS (6)
  1. SINGULAIR [Suspect]
     Indication: ASTHMA
     Route: 048
     Dates: start: 20060101, end: 20060101
  2. SINGULAIR [Suspect]
     Route: 048
     Dates: end: 20080301
  3. SINGULAIR [Suspect]
     Indication: HYPERSENSITIVITY
     Route: 048
     Dates: start: 20060101, end: 20060101
  4. SINGULAIR [Suspect]
     Route: 048
     Dates: end: 20080301
  5. CLARITIN [Concomitant]
     Route: 048
  6. ALBUTEROL [Concomitant]

REACTIONS (2)
  - DYSPNOEA [None]
  - MYALGIA [None]
